FAERS Safety Report 9613085 (Version 3)
Quarter: 2013Q4

REPORT INFORMATION
  Report Type: Spontaneous
  Country: DE (occurrence: DE)
  Receive Date: 20131010
  Receipt Date: 20131111
  Transmission Date: 20140711
  Serious: Yes (Death, Other)
  Sender: FDA-Public Use
  Company Number: DE-ROCHE-1286969

PATIENT
  Age: 51 Year
  Sex: Male
  Weight: 90 kg

DRUGS (9)
  1. AVASTIN [Suspect]
     Indication: COLORECTAL CANCER METASTATIC
     Dosage: 3 CYCLES IN TOTAL
     Route: 042
     Dates: start: 20130306, end: 20130710
  2. OXALIPLATIN [Suspect]
     Indication: COLORECTAL CANCER METASTATIC
     Dosage: 3 CYCLES IN TOTAL
     Route: 065
  3. FOLINIC ACID [Suspect]
     Indication: COLORECTAL CANCER METASTATIC
     Dosage: 3 CYCLES IN TOTAL
     Route: 065
  4. FLUOROURACIL [Suspect]
     Indication: COLORECTAL CANCER METASTATIC
     Dosage: 3 CYCLES IN TOTAL
     Route: 042
  5. IRINOTECAN [Suspect]
     Indication: COLORECTAL CANCER METASTATIC
     Route: 042
     Dates: start: 201303
  6. LEUCOVORIN [Suspect]
     Indication: COLORECTAL CANCER METASTATIC
     Route: 042
     Dates: start: 201303
  7. CETUXIMAB [Suspect]
     Indication: COLORECTAL CANCER METASTATIC
     Route: 065
     Dates: start: 20130724, end: 20130726
  8. MCP [Concomitant]
     Route: 048
  9. DOXICYCLIN [Concomitant]
     Route: 048
     Dates: start: 201209

REACTIONS (2)
  - Enterovesical fistula [Fatal]
  - Metastasis [Unknown]
